FAERS Safety Report 11786762 (Version 1)
Quarter: 2015Q4

REPORT INFORMATION
  Report Type: Spontaneous
  Country: GB (occurrence: GB)
  Receive Date: 20151130
  Receipt Date: 20151130
  Transmission Date: 20160305
  Serious: Yes (Life-Threatening, Hospitalization)
  Sender: FDA-Public Use
  Company Number: GB-JNJFOC-20151123802

PATIENT
  Age: 54 Year
  Sex: Female

DRUGS (3)
  1. OMEPRAZOLE. [Concomitant]
     Active Substance: OMEPRAZOLE
     Indication: PRODUCT USED FOR UNKNOWN INDICATION
     Dosage: DOSE: 1.0 (UNIT UNSPECIFIED). CUMULATIVE DOSE TO FIRST REACTION: 1.0 (UNIT UNSPECIFIED).
     Route: 065
     Dates: start: 20151002
  2. COCODAMOL [Suspect]
     Active Substance: ACETAMINOPHEN\CODEINE PHOSPHATE
     Indication: PRODUCT USED FOR UNKNOWN INDICATION
     Route: 065
     Dates: start: 20151002
  3. NAPROXEN. [Concomitant]
     Active Substance: NAPROXEN
     Indication: PRODUCT USED FOR UNKNOWN INDICATION
     Dosage: DOSE: 1.0 (UNIT UNSPECIFIED).?? CUMULATIVE DOSE TO FIRST REACTION: 3.0 (UNIT UNSPECIFIED).
     Route: 065
     Dates: start: 20151002

REACTIONS (1)
  - Foaming at mouth [Recovered/Resolved]

NARRATIVE: CASE EVENT DATE: 20151002
